FAERS Safety Report 6054460-3 (Version None)
Quarter: 2009Q1

REPORT INFORMATION
  Report Type: 
  Country: None (occurrence: None)
  Receive Date: 20090123
  Receipt Date: 20090123
  Transmission Date: 20090719
  Serious: Yes (Hospitalization)
  Sender: FDA-Public Use
  Company Number: None

PATIENT
  Age: 79 Year
  Sex: Female
  Weight: 47.6277 kg

DRUGS (3)
  1. DASATINIB, 50 MG TABLETS (BRISTOL MYERS SQUIBB) [Suspect]
     Indication: BREAST CANCER
     Dosage: 100 MG PO QD
     Route: 048
     Dates: start: 20090107
  2. LISINOPRIL [Concomitant]
  3. TYLENOL [Concomitant]

REACTIONS (5)
  - CHEST PAIN [None]
  - DIARRHOEA [None]
  - DYSPNOEA [None]
  - NAUSEA [None]
  - VOMITING [None]
